FAERS Safety Report 6700100-7 (Version None)
Quarter: 2010Q2

REPORT INFORMATION
  Report Type: 
  Country: None (occurrence: None)
  Receive Date: 20100428
  Receipt Date: 20100421
  Transmission Date: 20101027
  Serious: No
  Sender: FDA-Public Use
  Company Number: US-B.I. PHARMACEUTICALS,INC./RIDGEFIELD-2010-BP-02881BP

PATIENT
  Sex: Male
  Weight: 79.38 kg

DRUGS (1)
  1. MIRAPEX [Suspect]
     Indication: RESTLESS LEGS SYNDROME
     Dosage: 50 MG
     Dates: start: 20020101, end: 20070101

REACTIONS (4)
  - EMOTIONAL DISTRESS [None]
  - HYPERSEXUALITY [None]
  - PAIN [None]
  - PATHOLOGICAL GAMBLING [None]
